FAERS Safety Report 16908104 (Version 1)
Quarter: 2019Q4

REPORT INFORMATION
  Report Type: Spontaneous
  Country: DE (occurrence: DE)
  Receive Date: 20191011
  Receipt Date: 20191011
  Transmission Date: 20200122
  Serious: Yes (Other)
  Sender: FDA-Public Use
  Company Number: DE-009507513-1910DEU000974

PATIENT
  Age: 21 Year
  Sex: Female

DRUGS (2)
  1. NUVARING [Suspect]
     Active Substance: ETHINYL ESTRADIOL\ETONOGESTREL
     Dosage: USED ^AGAIN SINCE SEVERAL MONTHS AGO^
  2. NUVARING [Suspect]
     Active Substance: ETHINYL ESTRADIOL\ETONOGESTREL
     Dosage: USED ^BEFORE ALREADY AT THE AGE OF 18 YEARS^
     Dates: start: 2016

REACTIONS (4)
  - Blood count abnormal [Unknown]
  - Rash [Unknown]
  - Diabetes mellitus [Unknown]
  - Rash [Unknown]

NARRATIVE: CASE EVENT DATE: 2016
